FAERS Safety Report 4322886-1 (Version None)
Quarter: 2004Q1

REPORT INFORMATION
  Report Type: 
  Country: None (occurrence: None)
  Receive Date: 20040324
  Receipt Date: 20040310
  Transmission Date: 20041129
  Serious: Yes (Death, Hospitalization)
  Sender: FDA-Public Use
  Company Number: WAES 0403THA00003

PATIENT
  Age: 89 Year
  Sex: Female

DRUGS (1)
  1. INVANZ [Suspect]
     Indication: URINARY TRACT INFECTION
     Dates: start: 20040128, end: 20040130

REACTIONS (2)
  - SEPSIS [None]
  - SOMNOLENCE [None]
